FAERS Safety Report 11025335 (Version 1)
Quarter: 2015Q2

REPORT INFORMATION
  Report Type: Spontaneous
  Country: US (occurrence: None)
  Receive Date: 20150413
  Receipt Date: 20150413
  Transmission Date: 20150821
  Serious: No
  Sender: FDA-Public Use
  Company Number: None

PATIENT

DRUGS (3)
  1. ESTRADIOL. [Suspect]
     Active Substance: ESTRADIOL
  2. EXEMESTANE. [Suspect]
     Active Substance: EXEMESTANE
  3. MONTELUKAST [Suspect]
     Active Substance: MONTELUKAST SODIUM

REACTIONS (4)
  - Drug interaction [None]
  - Wrong patient received medication [None]
  - Wrong drug administered [None]
  - No adverse event [None]
